FAERS Safety Report 10105720 (Version 1)
Quarter: 2014Q2

REPORT INFORMATION
  Report Type: Spontaneous
  Country: DE (occurrence: DE)
  Receive Date: 20140424
  Receipt Date: 20140424
  Transmission Date: 20141212
  Serious: Yes (Other)
  Sender: FDA-Public Use
  Company Number: GXKR2014DE001665

PATIENT
  Sex: Male

DRUGS (1)
  1. CLOZAPIN 1A PHARMA [Suspect]
     Route: 048

REACTIONS (1)
  - Urinary tract infection [Unknown]
